FAERS Safety Report 8081172-7 (Version None)
Quarter: 2012Q1

REPORT INFORMATION
  Report Type: 
  Country: None (occurrence: None)
  Receive Date: 20120130
  Receipt Date: 20120125
  Transmission Date: 20120608
  Serious: Yes (Hospitalization)
  Sender: FDA-Public Use
  Company Number: JP-GLAXOSMITHKLINE-B0770900A

PATIENT
  Sex: Female

DRUGS (5)
  1. PAXIL [Concomitant]
     Indication: DEPRESSION
     Dosage: 10MG PER DAY
     Route: 048
     Dates: start: 20111121
  2. LAMICTAL [Suspect]
     Indication: BIPOLAR DISORDER
     Dosage: 25MG ALTERNATE DAYS
     Route: 048
     Dates: start: 20111121, end: 20111204
  3. DEPAKENE [Concomitant]
     Indication: BIPOLAR DISORDER
     Dosage: 200MG PER DAY
     Route: 048
     Dates: start: 20111121, end: 20111216
  4. ROHYPNOL [Concomitant]
     Indication: INSOMNIA
     Dosage: 4MG PER DAY
     Route: 065
     Dates: start: 20111121
  5. LAMICTAL [Suspect]
     Dosage: 25MG PER DAY
     Route: 048
     Dates: start: 20111205, end: 20111216

REACTIONS (3)
  - HYPERTHERMIA [None]
  - ERYTHEMA MULTIFORME [None]
  - SKIN DISORDER [None]
